FAERS Safety Report 8887325 (Version 2)
Quarter: 2012Q4

REPORT INFORMATION
  Report Type: 
  Country: US (occurrence: US)
  Receive Date: 20121101
  Receipt Date: 20121211
  Transmission Date: 20130627
  Serious: Yes (Other)
  Sender: FDA-Public Use
  Company Number: US-PFIZER INC-2012272951

PATIENT
  Age: 54 Year
  Sex: Female
  Weight: 76.6 kg

DRUGS (3)
  1. PRISTIQ [Suspect]
     Indication: DEPRESSION
     Dosage: 50 mg, 1x/day
     Dates: start: 2012
  2. CRESTOR [Concomitant]
     Indication: HIGH CHOLESTEROL
     Dosage: 5 mg, UNK
  3. NEXIUM [Concomitant]
     Indication: GASTROESOPHAGEAL REFLUX DISEASE
     Dosage: 40 mg, 2x/day

REACTIONS (3)
  - Fall [Unknown]
  - Hand fracture [Unknown]
  - Foot fracture [Unknown]
